FAERS Safety Report 7251525-5 (Version None)
Quarter: 2011Q1

REPORT INFORMATION
  Report Type: 
  Country: None (occurrence: None)
  Receive Date: 20110128
  Receipt Date: 20110116
  Transmission Date: 20110831
  Serious: Yes (Other)
  Sender: FDA-Public Use
  Company Number: CA-ELI_LILLY_AND_COMPANY-CA201101003792

PATIENT
  Age: 50 Year
  Sex: Female

DRUGS (8)
  1. PROGESTERONE [Concomitant]
  2. ESTROGENIC SUBSTANCE [Concomitant]
  3. PRASTERONE [Concomitant]
  4. FORTEO [Suspect]
     Indication: OSTEOPOROSIS
     Dosage: 20 UG, DAILY (1/D)
     Route: 058
     Dates: start: 20090521, end: 20101015
  5. VITAMIN B-12 [Concomitant]
  6. VITAMIN D [Concomitant]
  7. PREDNISONE [Concomitant]
  8. IRON [Concomitant]
     Dosage: UNK, MONTHLY (1/M)

REACTIONS (1)
  - COLITIS ULCERATIVE [None]
